FAERS Safety Report 8780156 (Version 1)
Quarter: 2012Q4

REPORT INFORMATION
  Report Type: Spontaneous
  Country: DK (occurrence: None)
  Receive Date: 20120828
  Receipt Date: 20120828
  Transmission Date: 20130627
  Serious: No
  Sender: FDA-Public Use
  Company Number: 2012MA010378

PATIENT
  Age: 83 Year
  Sex: Female

DRUGS (2)
  1. PACLITAXEL [Suspect]
     Indication: OVARIAN CANCER
     Route: 042
     Dates: start: 20120612
  2. CARBOPLATIN [Suspect]

REACTIONS (6)
  - Hypersensitivity [None]
  - Flushing [None]
  - Dyspnoea [None]
  - Syncope [None]
  - Cyanosis [None]
  - Pain [None]
